FAERS Safety Report 10597530 (Version 1)
Quarter: 2014Q4

REPORT INFORMATION
  Report Type: Spontaneous
  Country: US (occurrence: None)
  Receive Date: 20141119
  Receipt Date: 20141119
  Transmission Date: 20150529
  Serious: Yes (Hospitalization)
  Sender: FDA-Public Use
  Company Number: IMP_08159_2014

PATIENT
  Age: 28 Year
  Sex: Male

DRUGS (4)
  1. VALPROIC ACID. [Concomitant]
     Active Substance: VALPROIC ACID
  2. ESCITALOPRAM [Concomitant]
     Active Substance: ESCITALOPRAM OXALATE
  3. ALPRAZOLAM. [Suspect]
     Active Substance: ALPRAZOLAM
     Indication: PRODUCT USED FOR UNKNOWN INDICATION
     Dosage: (NOT USUAL DOSE ORAL)
     Route: 048
  4. HEROIN [Suspect]
     Active Substance: DIACETYLMORPHINE
     Indication: PRODUCT USED FOR UNKNOWN INDICATION
     Dosage: (DF)

REACTIONS (10)
  - Cyanosis [None]
  - Nuclear magnetic resonance imaging brain abnormal [None]
  - Chorea [None]
  - Drug abuser [None]
  - Overdose [None]
  - Drooling [None]
  - Dyskinesia [None]
  - Brain injury [None]
  - Loss of consciousness [None]
  - Balance disorder [None]
